FAERS Safety Report 11729939 (Version 2)
Quarter: 2016Q1

REPORT INFORMATION
  Report Type: Spontaneous
  Country: US (occurrence: US)
  Receive Date: 20151112
  Receipt Date: 20160104
  Transmission Date: 20160525
  Serious: Yes (Hospitalization)
  Sender: FDA-Public Use
  Company Number: US-ACTELION-A-NJ2015-126959

PATIENT
  Age: 73 Year
  Sex: Female

DRUGS (12)
  1. ADCIRCA [Concomitant]
     Active Substance: TADALAFIL
     Dosage: 40 MG, QD
     Dates: start: 201302
  2. LASIX [Concomitant]
     Active Substance: FUROSEMIDE
  3. ZOCOR [Concomitant]
     Active Substance: SIMVASTATIN
  4. MULTIVITAMIN [Concomitant]
     Active Substance: VITAMINS
  5. SYNTHROID [Concomitant]
     Active Substance: LEVOTHYROXINE SODIUM
  6. ZYRTEC [Concomitant]
     Active Substance: CETIRIZINE HYDROCHLORIDE
  7. OPSUMIT [Suspect]
     Active Substance: MACITENTAN
     Indication: PULMONARY ARTERIAL HYPERTENSION
     Dosage: 10 MG, UNK
     Route: 048
     Dates: start: 201409
  8. ADVAIR HFA [Concomitant]
     Active Substance: FLUTICASONE PROPIONATE\SALMETEROL XINAFOATE
  9. BUSPAR [Concomitant]
     Active Substance: BUSPIRONE HYDROCHLORIDE
  10. XANAX [Concomitant]
     Active Substance: ALPRAZOLAM
  11. REMODULIN [Concomitant]
     Active Substance: TREPROSTINIL
     Dosage: 214 NG/KG, PER MIN
     Dates: start: 200601
  12. CALCIUM [Concomitant]
     Active Substance: CALCIUM

REACTIONS (2)
  - Pneumonia [Recovering/Resolving]
  - Productive cough [Recovering/Resolving]
